FAERS Safety Report 10094898 (Version 1)
Quarter: 2014Q2

REPORT INFORMATION
  Report Type: Spontaneous
  Country: US (occurrence: US)
  Receive Date: 20140422
  Receipt Date: 20140422
  Transmission Date: 20141212
  Serious: Yes (Other)
  Sender: FDA-Public Use
  Company Number: US-BAYER-2014-057001

PATIENT
  Age: 31 Year
  Sex: Female

DRUGS (2)
  1. MIRENA [Suspect]
     Indication: CONTRACEPTION
     Dosage: 20 MCG/24HR, CONT
     Route: 015
     Dates: start: 201211
  2. MIRENA [Suspect]
     Indication: GENITAL HAEMORRHAGE

REACTIONS (4)
  - Genital haemorrhage [None]
  - Embedded device [None]
  - Menorrhagia [None]
  - Drug ineffective [None]
